FAERS Safety Report 8494859-9 (Version None)
Quarter: 2012Q2

REPORT INFORMATION
  Report Type: 
  Country: None (occurrence: None)
  Receive Date: 20120628
  Receipt Date: 20120619
  Transmission Date: 20120825
  Serious: Yes (Hospitalization)
  Sender: FDA-Public Use
  Company Number: AUR-APL-2012-02755

PATIENT
  Age: 69 Year
  Sex: Female
  Weight: 90.7 kg

DRUGS (7)
  1. VICODIN [Concomitant]
  2. PRISTIQ [Suspect]
     Indication: ANTIDEPRESSANT THERAPY
     Dosage: 50 MG (50 MG, 1 IN 1 D)
     Dates: end: 20120101
  3. MELOXICAM [Suspect]
     Indication: ARTHRITIS
     Dosage: 15 MG (7.5 MG, 2 IN 1 D)
     Dates: start: 20120101
  4. XANAX [Suspect]
     Indication: PANIC ATTACK
     Dosage: 10 MG (5 MG, 2 IN 1 D)
  5. AMLODIPINE [Concomitant]
  6. NAMENDA [Concomitant]
  7. TRAMADOL HCL [Concomitant]

REACTIONS (6)
  - BLOOD DISORDER [None]
  - POISONING [None]
  - PANIC ATTACK [None]
  - LIMB INJURY [None]
  - FALL [None]
  - TREATMENT NONCOMPLIANCE [None]
